FAERS Safety Report 7390384-7 (Version None)
Quarter: 2011Q2

REPORT INFORMATION
  Report Type: 
  Country: None (occurrence: None)
  Receive Date: 20110401
  Receipt Date: 20110322
  Transmission Date: 20111010
  Serious: Yes (Other)
  Sender: FDA-Public Use
  Company Number: PHHY2011JP19863

PATIENT
  Age: 51 Year
  Sex: Male

DRUGS (14)
  1. PREDNISONE [Concomitant]
  2. RITUXAN [Concomitant]
  3. CYCLOSPORINE [Suspect]
     Indication: PROPHYLAXIS AGAINST GRAFT VERSUS HOST DISEASE
  4. IRRADIATION [Concomitant]
  5. CYCLOSPORINE [Suspect]
     Indication: STEM CELL TRANSPLANT
  6. MYCOPHENOLATE MOFETIL [Concomitant]
     Indication: PROPHYLAXIS AGAINST GRAFT VERSUS HOST DISEASE
  7. DOXORUBICIN [Concomitant]
  8. RITUXIMAB [Concomitant]
  9. MITOXANTRONE [Concomitant]
  10. M RUNIMUSTINE C CARBOPLATIN [Concomitant]
  11. FLUDARABINE [Concomitant]
  12. CYCLOPHOSPHAMIDE [Concomitant]
  13. VINCRISTINE [Concomitant]
  14. CHASER [Concomitant]

REACTIONS (5)
  - CARDIOMYOPATHY [None]
  - GRAFT VERSUS HOST DISEASE [None]
  - BRAIN NATRIURETIC PEPTIDE INCREASED [None]
  - CARDIAC FAILURE CONGESTIVE [None]
  - FLUID RETENTION [None]
